FAERS Safety Report 5466743-6 (Version None)
Quarter: 2007Q3

REPORT INFORMATION
  Report Type: 
  Country: None (occurrence: None)
  Receive Date: 20070924
  Receipt Date: 20070924
  Transmission Date: 20080115
  Serious: No
  Sender: FDA-Public Use
  Company Number: None

PATIENT
  Age: 67 Year
  Sex: Male

DRUGS (1)
  1. ADENOSINE [Suspect]
     Indication: ATRIAL FIBRILLATION
     Dosage: 46.6MG  ONCE  IV
     Route: 042
     Dates: start: 20070814, end: 20070814

REACTIONS (2)
  - LOSS OF CONSCIOUSNESS [None]
  - TACHYPNOEA [None]
